FAERS Safety Report 24284816 (Version 2)
Quarter: 2025Q2

REPORT INFORMATION
  Report Type: Spontaneous
  Country: CZ (occurrence: CZ)
  Receive Date: 20240905
  Receipt Date: 20250528
  Transmission Date: 20250716
  Serious: Yes (Disabling, Other)
  Sender: AUROBINDO
  Company Number: CZ-EMA-20141222-kskanwarp-150840677

PATIENT
  Age: 65 Year
  Sex: Male

DRUGS (20)
  1. GABAPENTIN [Suspect]
     Active Substance: GABAPENTIN
     Indication: Neuropathy peripheral
     Dosage: 300 MG, TID
     Route: 065
  2. GABAPENTIN [Suspect]
     Active Substance: GABAPENTIN
     Indication: Neuralgia
     Dosage: 600MG, TID
     Route: 065
  3. GABAPENTIN [Suspect]
     Active Substance: GABAPENTIN
     Dosage: INCREASED TO 600MG 3X DAILY
     Route: 065
  4. AMITRIPTYLINE [Suspect]
     Active Substance: AMITRIPTYLINE
     Indication: Neuropathy peripheral
     Dosage: AT NIGHT; INCREASED TO 75MG AT NIGHT
     Route: 048
  5. AMITRIPTYLINE [Suspect]
     Active Substance: AMITRIPTYLINE
     Indication: Neuralgia
     Dosage: 75 MILLIGRAM, ONCE A DAY AT NIGHT
     Route: 048
  6. AMITRIPTYLINE [Suspect]
     Active Substance: AMITRIPTYLINE
     Indication: Product used for unknown indication
     Dosage: 75 MILLIGRAM, ONCE A DAY
     Route: 048
  7. DOCETAXEL [Suspect]
     Active Substance: DOCETAXEL
     Indication: Chemotherapy
     Route: 065
     Dates: start: 201203
  8. DOCETAXEL [Suspect]
     Active Substance: DOCETAXEL
     Indication: Prostate cancer
     Route: 065
  9. DOCETAXEL [Suspect]
     Active Substance: DOCETAXEL
     Indication: Prostate cancer metastatic
  10. DOCETAXEL [Suspect]
     Active Substance: DOCETAXEL
     Indication: Metastases to bone
  11. PREDNISONE [Suspect]
     Active Substance: PREDNISONE
     Indication: Metastases to bone
     Dosage: 5 MG, FREQ: 2 DAY; INTERVAL: 1 (, 5 MG, 2X/DAY)
     Route: 048
     Dates: start: 201203
  12. PREDNISONE [Suspect]
     Active Substance: PREDNISONE
     Indication: Chemotherapy
  13. PREDNISONE [Suspect]
     Active Substance: PREDNISONE
     Indication: Prostate cancer
  14. CYPROTERONE ACETATE [Concomitant]
     Active Substance: CYPROTERONE ACETATE
     Indication: Prostate cancer
     Route: 065
     Dates: end: 201203
  15. FENTANYL [Concomitant]
     Active Substance: FENTANYL
     Indication: Neuropathy peripheral
     Route: 062
  16. LEUPROLIDE ACETATE [Concomitant]
     Active Substance: LEUPROLIDE ACETATE
     Indication: Prostate cancer
     Route: 065
     Dates: end: 201203
  17. UNSPECIFIED INGREDIENT [Concomitant]
     Active Substance: UNSPECIFIED INGREDIENT
     Indication: Product used for unknown indication
     Route: 065
  18. ZOLEDRONIC ACID [Concomitant]
     Active Substance: ZOLEDRONIC ACID
     Indication: Product used for unknown indication
     Route: 065
  19. TAPENTADOL [Concomitant]
     Active Substance: TAPENTADOL
     Indication: Product used for unknown indication
     Dosage: 50 MILLIGRAM, TWO TIMES A DAY
     Route: 065
  20. TAPENTADOL [Concomitant]
     Active Substance: TAPENTADOL
     Dosage: 100 MILLIGRAM, TWO TIMES A DAY
     Route: 065

REACTIONS (14)
  - Visual impairment [Unknown]
  - Pain in extremity [Recovered/Resolved]
  - Thermohyperaesthesia [Recovering/Resolving]
  - Neuralgia [Recovered/Resolved]
  - Quality of life decreased [Recovered/Resolved]
  - Orthostatic hypotension [Recovered/Resolved]
  - Burning sensation [Recovered/Resolved]
  - Depression [Recovered/Resolved]
  - Muscular weakness [Recovered/Resolved]
  - Gastrointestinal disorder [Recovered/Resolved]
  - Hypertension [Recovered/Resolved]
  - Paraesthesia [Recovering/Resolving]
  - Neuropathy peripheral [Recovered/Resolved]
  - Drug ineffective [Unknown]
